FAERS Safety Report 10459853 (Version 2)
Quarter: 2014Q4

REPORT INFORMATION
  Report Type: Spontaneous
  Country: US (occurrence: US)
  Receive Date: 20140917
  Receipt Date: 20141030
  Transmission Date: 20150528
  Serious: Yes (Hospitalization)
  Sender: FDA-Public Use
  Company Number: US-BAYER-2014-138286

PATIENT
  Age: 25 Year
  Sex: Female

DRUGS (2)
  1. DEPO-PROVERA [Concomitant]
     Active Substance: MEDROXYPROGESTERONE ACETATE
     Dosage: UNK
     Dates: start: 201012, end: 201103
  2. MIRENA [Suspect]
     Active Substance: LEVONORGESTREL
     Indication: CONTRACEPTION
     Dosage: 20 MCG/24HR, CONT
     Route: 015
     Dates: start: 20110309, end: 20140303

REACTIONS (9)
  - Medical device complication [None]
  - Pelvic adhesions [None]
  - Peritoneal adhesions [None]
  - Pain [None]
  - Dyspareunia [None]
  - Injury [None]
  - Device issue [None]
  - Uterine perforation [None]
  - Abdominal pain lower [None]

NARRATIVE: CASE EVENT DATE: 201103
